FAERS Safety Report 21173649 (Version 1)
Quarter: 2022Q3

REPORT INFORMATION
  Report Type: Spontaneous
  Country: CN (occurrence: CN)
  Receive Date: 20220804
  Receipt Date: 20220804
  Transmission Date: 20221026
  Serious: Yes (Other)
  Sender: FDA-Public Use
  Company Number: CN-BAYER-2022A106582

PATIENT
  Age: 35 Year
  Sex: Female

DRUGS (4)
  1. DIANE (CYPROTERONE ACETATE\ETHINYL ESTRADIOL) [Suspect]
     Active Substance: CYPROTERONE ACETATE\ETHINYL ESTRADIOL
     Indication: Menstrual cycle management
     Dosage: UNK
     Route: 048
     Dates: start: 2022, end: 2022
  2. DIANE (CYPROTERONE ACETATE\ETHINYL ESTRADIOL) [Suspect]
     Active Substance: CYPROTERONE ACETATE\ETHINYL ESTRADIOL
     Indication: Menstrual cycle management
     Dosage: UNK
     Route: 048
     Dates: start: 20220628, end: 20220722
  3. YASMIN [Suspect]
     Active Substance: DROSPIRENONE\ETHINYL ESTRADIOL
     Indication: Uterine haemorrhage
     Dosage: 2 DF, QD
     Route: 048
     Dates: start: 20220723, end: 20220727
  4. YASMIN [Suspect]
     Active Substance: DROSPIRENONE\ETHINYL ESTRADIOL
     Indication: Uterine haemorrhage
     Dosage: 1 DF, TID
     Route: 048
     Dates: start: 20220728

REACTIONS (6)
  - Uterine haemorrhage [Not Recovered/Not Resolved]
  - Blood loss anaemia [Recovering/Resolving]
  - Product use in unapproved indication [None]
  - Product use in unapproved indication [None]
  - Inappropriate schedule of product administration [None]
  - Drug ineffective for unapproved indication [None]

NARRATIVE: CASE EVENT DATE: 20220101
